FAERS Safety Report 8448474-3 (Version None)
Quarter: 2012Q2

REPORT INFORMATION
  Report Type: 
  Country: None (occurrence: None)
  Receive Date: 20120619
  Receipt Date: 20120611
  Transmission Date: 20120825
  Serious: Yes (Hospitalization)
  Sender: FDA-Public Use
  Company Number: US-ROCHE-1075783

PATIENT
  Sex: Male
  Weight: 69.462 kg

DRUGS (1)
  1. XELODA [Suspect]
     Indication: COLORECTAL CANCER METASTATIC
     Dosage: 1000 MG AT MORNING (AM) AND 1500 MG AT BEDTIME (HS)
     Route: 048
     Dates: start: 20111115, end: 20120506

REACTIONS (1)
  - LIVER OPERATION [None]
